FAERS Safety Report 6970488-0 (Version None)
Quarter: 2010Q3

REPORT INFORMATION
  Report Type: 
  Country: None (occurrence: None)
  Receive Date: 20100908
  Receipt Date: 20100831
  Transmission Date: 20110219
  Serious: Yes (Hospitalization)
  Sender: FDA-Public Use
  Company Number: US-ROCHE-703364

PATIENT
  Sex: Male

DRUGS (5)
  1. PEGINTERFERON ALFA-2A [Suspect]
     Indication: HEPATITIS C
     Dosage: FORM: PRE-FILLED SYRINGE
     Route: 058
     Dates: start: 20100216, end: 20100601
  2. COPEGUS [Suspect]
     Indication: HEPATITIS C
     Route: 048
     Dates: start: 20100216
  3. RIBAVIRIN [Suspect]
     Indication: HEPATITIS C
     Dosage: DIVIDED DOSES.
     Route: 065
  4. MIRTAZAPINE [Concomitant]
  5. LORAZEPAM [Concomitant]

REACTIONS (4)
  - BACK INJURY [None]
  - EAR DISORDER [None]
  - JOINT SWELLING [None]
  - VERTIGO [None]
